FAERS Safety Report 7746528-8 (Version None)
Quarter: 2011Q3

REPORT INFORMATION
  Report Type: 
  Country: None (occurrence: None)
  Receive Date: 20110913
  Receipt Date: 20110830
  Transmission Date: 20111222
  Serious: No
  Sender: FDA-Public Use
  Company Number: US-BAYER-2011-081773

PATIENT
  Sex: Female

DRUGS (2)
  1. PROMETRIUM [Concomitant]
  2. ALEVE (CAPLET) [Suspect]
     Indication: MIGRAINE
     Dosage: 12 DF, UNK
     Route: 048

REACTIONS (4)
  - AMENORRHOEA [None]
  - VERTIGO [None]
  - MALAISE [None]
  - HEADACHE [None]
